FAERS Safety Report 24643107 (Version 1)
Quarter: 2024Q4

REPORT INFORMATION
  Report Type: Spontaneous
  Country: US (occurrence: US)
  Receive Date: 20241120
  Receipt Date: 20241120
  Transmission Date: 20250114
  Serious: No
  Sender: PFIZER
  Company Number: US-PFIZER INC-202400303174

PATIENT
  Age: 90 Year
  Sex: Male
  Weight: 79.8 kg

DRUGS (1)
  1. SILVER SULFADIAZENE [Suspect]
     Active Substance: SILVER SULFADIAZINE

REACTIONS (2)
  - Drug hypersensitivity [Unknown]
  - Nausea [Unknown]
